FAERS Safety Report 8141260-3 (Version None)
Quarter: 2012Q1

REPORT INFORMATION
  Report Type: 
  Country: None (occurrence: None)
  Receive Date: 20120216
  Receipt Date: 20120203
  Transmission Date: 20120608
  Serious: Yes (Life-Threatening, Hospitalization, Other)
  Sender: FDA-Public Use
  Company Number: FR-INCYTE CORPORATION-2011IN000314

PATIENT
  Sex: Female
  Weight: 63 kg

DRUGS (2)
  1. LEVOTHYROXINE SODIUM [Concomitant]
  2. INC424 [Suspect]
     Indication: MYELOFIBROSIS
     Dosage: 20 MG, BID
     Route: 048
     Dates: start: 20111109, end: 20111124

REACTIONS (6)
  - PERITONEAL HAEMORRHAGE [None]
  - LEUKOCYTOSIS [None]
  - DISSEMINATED INTRAVASCULAR COAGULATION [None]
  - ANAEMIA [None]
  - CONFUSIONAL STATE [None]
  - THROMBOCYTOSIS [None]
